FAERS Safety Report 9229930 (Version 1)
Quarter: 2013Q2

REPORT INFORMATION
  Report Type: Spontaneous
  Country: US (occurrence: None)
  Receive Date: 20130412
  Receipt Date: 20130412
  Transmission Date: 20140414
  Serious: Yes (Hospitalization)
  Sender: FDA-Public Use
  Company Number: None

PATIENT
  Age: 54 Year
  Sex: Female
  Weight: 70.7 kg

DRUGS (2)
  1. CISPLATIN [Suspect]
     Dates: end: 20110328
  2. ETOPOSIDE (VP-16) [Suspect]
     Dates: start: 20110330

REACTIONS (5)
  - Dizziness [None]
  - Loss of consciousness [None]
  - Syncope [None]
  - Hypovolaemia [None]
  - Urinary tract infection pseudomonal [None]
